FAERS Safety Report 5085828-X (Version None)
Quarter: 2006Q3

REPORT INFORMATION
  Report Type: 
  Country: None (occurrence: None)
  Receive Date: 20060822
  Receipt Date: 20060815
  Transmission Date: 20061208
  Serious: Yes (Hospitalization)
  Sender: FDA-Public Use
  Company Number: 2006UW16262

PATIENT
  Age: 71 Year
  Sex: Female
  Weight: 70.3 kg

DRUGS (20)
  1. NEXIUM [Suspect]
     Indication: GASTROOESOPHAGEAL REFLUX DISEASE
     Route: 048
     Dates: start: 20050101
  2. TRAZODONE HCL [Concomitant]
  3. FUROSEMIDE [Concomitant]
  4. DYPHYLLINE [Concomitant]
  5. ZOCOR [Concomitant]
  6. POTASSIUM CHLORIDE [Concomitant]
  7. NITROGLYCERIN [Concomitant]
  8. PRILOSEC OTC [Concomitant]
  9. ASPIRIN [Concomitant]
  10. TEMAZEPAM [Concomitant]
  11. MAGNESIUM [Concomitant]
  12. LISINOPRIL [Concomitant]
  13. LEVSIN [Concomitant]
  14. LORAZEPAM [Concomitant]
  15. ZOLOFT [Concomitant]
  16. TYLENOL W/ CODEINE NO. 3 [Concomitant]
  17. PREMARIN [Concomitant]
  18. SPIRONOLACTONE [Concomitant]
  19. METOPROLOL [Concomitant]
  20. SYNTHROID [Concomitant]

REACTIONS (3)
  - DEHYDRATION [None]
  - HYPERSENSITIVITY [None]
  - VOMITING [None]
